FAERS Safety Report 8497638-1 (Version None)
Quarter: 2012Q3

REPORT INFORMATION
  Report Type: 
  Country: None (occurrence: None)
  Receive Date: 20120709
  Receipt Date: 20120613
  Transmission Date: 20120928
  Serious: No
  Sender: FDA-Public Use
  Company Number: US-AMGEN-USASP2012026342

PATIENT
  Age: 55 Year
  Sex: Male

DRUGS (2)
  1. ENBREL [Suspect]
     Indication: RHEUMATOID ARTHRITIS
     Dosage: 50 MG, WEEKLY
     Route: 058
     Dates: start: 20110919, end: 20111025
  2. METHOTREXATE [Concomitant]
     Dosage: 25 MG/ML, WEEKLY
     Route: 058
     Dates: start: 20110601

REACTIONS (2)
  - HYPERSENSITIVITY [None]
  - RASH [None]
